FAERS Safety Report 6597132-9 (Version None)
Quarter: 2010Q1

REPORT INFORMATION
  Report Type: 
  Country: None (occurrence: None)
  Receive Date: 20100223
  Receipt Date: 20100209
  Transmission Date: 20100710
  Serious: No
  Sender: FDA-Public Use
  Company Number: US-B.I. PHARMACEUTICALS,INC./RIDGEFIELD-2010-BP-01702BP

PATIENT
  Age: 66 Year
  Sex: Male

DRUGS (2)
  1. MIRAPEX [Suspect]
     Dosage: 1.5 MG
     Dates: start: 20000101, end: 20100201
  2. ARTANE [Concomitant]
     Indication: TREMOR

REACTIONS (2)
  - DYSPHAGIA [None]
  - HYPERSEXUALITY [None]
